FAERS Safety Report 10203343 (Version 2)
Quarter: 2014Q2

REPORT INFORMATION
  Report Type: Spontaneous
  Country: IT (occurrence: IT)
  Receive Date: 20140529
  Receipt Date: 20140609
  Transmission Date: 20141212
  Serious: Yes (Disabling)
  Sender: FDA-Public Use
  Company Number: PHHY2014IT064175

PATIENT
  Age: 59 Year
  Sex: Female

DRUGS (4)
  1. FEMARA [Suspect]
     Indication: BREAST CANCER
     Dosage: 1 DF, DAILY
     Dates: start: 20130808, end: 20140308
  2. ANASTROZOLO DOC GENERICI [Suspect]
     Indication: BREAST CANCER
     Dosage: 1 DF, DAILY FOR 1 MONTH
     Route: 048
  3. EUTIROX [Concomitant]
     Dosage: 1 DF, FOR 7 YEARS
     Route: 048
  4. DIBASE [Concomitant]
     Dosage: 2 DF, FOR 4 YEARS
     Route: 048

REACTIONS (3)
  - Arthropathy [Not Recovered/Not Resolved]
  - Tenosynovitis [Not Recovered/Not Resolved]
  - Trigger finger [Not Recovered/Not Resolved]
